FAERS Safety Report 18355889 (Version 1)
Quarter: 2020Q4

REPORT INFORMATION
  Report Type: Spontaneous
  Country: US (occurrence: US)
  Receive Date: 20201007
  Receipt Date: 20201007
  Transmission Date: 20210114
  Serious: No
  Sender: FDA-Public Use
  Company Number: US-PFIZER INC-2020383020

PATIENT
  Age: 46 Year
  Sex: Female
  Weight: 81.65 kg

DRUGS (4)
  1. TAPAZOLE [Suspect]
     Active Substance: METHIMAZOLE
     Dosage: 2.5 MG (2.5 MG FOR FIVE DAYS)
  2. TAPAZOLE [Suspect]
     Active Substance: METHIMAZOLE
     Indication: HYPERTHYROIDISM
     Dosage: 5 MG, 2X/WEEK (5MG TWO DAYS OUT OF THE WEEK)
  3. METHIMAZOLE. [Suspect]
     Active Substance: METHIMAZOLE
     Indication: HYPERTHYROIDISM
     Dosage: UNK
     Dates: start: 2009
  4. NOVOCAINE [Suspect]
     Active Substance: PROCAINE
     Dosage: UNK

REACTIONS (1)
  - Palpitations [Unknown]
